FAERS Safety Report 18117216 (Version 2)
Quarter: 2020Q3

REPORT INFORMATION
  Report Type: Spontaneous
  Country: US (occurrence: US)
  Receive Date: 20200805
  Receipt Date: 20200812
  Transmission Date: 20201103
  Serious: No
  Sender: FDA-Public Use
  Company Number: US-BAUSCH-BL-2020-021718

PATIENT
  Age: 58 Year
  Sex: Male

DRUGS (2)
  1. LUMIFY [Suspect]
     Active Substance: BRIMONIDINE TARTRATE
     Dosage: OPENED A NEW BOTTLE A COUPLE OF WEEKS AGO AND USED IT ONCE, VOLUME 7.5 ML
     Route: 047
     Dates: start: 202007, end: 202007
  2. LUMIFY [Suspect]
     Active Substance: BRIMONIDINE TARTRATE
     Indication: OCULAR HYPERAEMIA
     Dosage: STARTED COUPLE OF YEARS AGO, AS NEEDED
     Route: 047

REACTIONS (2)
  - Product quality issue [Unknown]
  - Eye irritation [Recovered/Resolved]

NARRATIVE: CASE EVENT DATE: 202007
